FAERS Safety Report 8211044-6 (Version None)
Quarter: 2012Q1

REPORT INFORMATION
  Report Type: 
  Country: None (occurrence: None)
  Receive Date: 20120315
  Receipt Date: 20120309
  Transmission Date: 20120608
  Serious: Yes (Other)
  Sender: FDA-Public Use
  Company Number: PHEH2012US004655

PATIENT
  Sex: Female

DRUGS (1)
  1. TEGRETOL [Suspect]
     Dosage: 200 MG, UNK
     Dates: start: 19800701

REACTIONS (4)
  - CONVULSION [None]
  - COUGH [None]
  - NASOPHARYNGITIS [None]
  - BRONCHITIS [None]
